FAERS Safety Report 11113036 (Version 2)
Quarter: 2015Q2

REPORT INFORMATION
  Report Type: Spontaneous
  Country: US (occurrence: US)
  Receive Date: 20150514
  Receipt Date: 20150521
  Transmission Date: 20150821
  Serious: No
  Sender: FDA-Public Use
  Company Number: US-EISAI MEDICAL RESEARCH-EC-2015-006667

PATIENT
  Age: 41 Year
  Sex: Female
  Weight: 51.81 kg

DRUGS (3)
  1. ILLEGAL MARIJUANA [Concomitant]
     Indication: SELF-MEDICATION
     Dosage: UNKNOWN
  2. DONEPEZIL [Suspect]
     Active Substance: DONEPEZIL
     Indication: COGNITIVE DISORDER
     Route: 048
     Dates: start: 20150319, end: 20150319
  3. DONEPEZIL [Suspect]
     Active Substance: DONEPEZIL
     Indication: MEMORY IMPAIRMENT
     Route: 048
     Dates: start: 20150312, end: 20150318

REACTIONS (4)
  - Accidental overdose [Recovered/Resolved]
  - Bipolar I disorder [Recovered/Resolved]
  - Nausea [Recovered/Resolved]
  - Vomiting [Recovered/Resolved]

NARRATIVE: CASE EVENT DATE: 20150312
